FAERS Safety Report 9590466 (Version 2)
Quarter: 2013Q4

REPORT INFORMATION
  Report Type: Spontaneous
  Country: US (occurrence: US)
  Receive Date: 20131003
  Receipt Date: 20131003
  Transmission Date: 20140711
  Serious: No
  Sender: FDA-Public Use
  Company Number: US-AMGEN-USASP2012076346

PATIENT
  Age: 54 Year
  Sex: Male

DRUGS (9)
  1. ENBREL [Suspect]
     Indication: RHEUMATOID ARTHRITIS
     Dosage: 50 MG, QWK
     Route: 058
     Dates: start: 20070827
  2. ENBREL [Suspect]
     Indication: PSORIATIC ARTHROPATHY
  3. ASPIRIN [Concomitant]
     Dosage: 81 MG, QD
     Route: 048
     Dates: start: 20120904
  4. FOLIC ACID [Concomitant]
     Indication: PSORIATIC ARTHROPATHY
     Dosage: UNK UNK, QD
     Route: 048
     Dates: start: 20121113
  5. GLUCOSAMINE SULFATE [Concomitant]
     Dosage: 3 TABS A DAY
     Dates: start: 20061116
  6. METFORMIN [Concomitant]
     Dosage: 500 MG, BID
     Route: 048
  7. METHOTREXATE SODIUM [Concomitant]
     Indication: PSORIATIC ARTHROPATHY
     Dosage: 2.5 MG, 6 TABLETS WEEKLY
     Route: 048
  8. PRILOSEC                           /00661201/ [Concomitant]
     Dosage: 20 MG, QD
     Route: 048
  9. PIROXICAM [Concomitant]
     Indication: PSORIATIC ARTHROPATHY
     Dosage: 20 MG, QD
     Route: 048

REACTIONS (21)
  - Type 2 diabetes mellitus [Not Recovered/Not Resolved]
  - Gait disturbance [Unknown]
  - Haemorrhoids [Unknown]
  - Hyperkeratosis [Unknown]
  - Hyperlipidaemia [Unknown]
  - Joint stiffness [Unknown]
  - Metatarsalgia [Unknown]
  - Muscular weakness [Unknown]
  - Large intestine polyp [Unknown]
  - Obesity [Unknown]
  - Joint dislocation pathological [Unknown]
  - Pain in extremity [Unknown]
  - Arthralgia [Unknown]
  - Intraocular lens implant [Unknown]
  - Psoriatic arthropathy [Not Recovered/Not Resolved]
  - Tendon injury [Unknown]
  - Tenotomy [Unknown]
  - Orthopaedic procedure [Unknown]
  - Rotator cuff repair [Unknown]
  - Psoriasis [Not Recovered/Not Resolved]
  - Injection site bruising [Not Recovered/Not Resolved]
